FAERS Safety Report 10964271 (Version 3)
Quarter: 2017Q4

REPORT INFORMATION
  Report Type: Spontaneous
  Country: US (occurrence: US)
  Receive Date: 20150329
  Receipt Date: 20171123
  Transmission Date: 20180320
  Serious: No
  Sender: FDA-Public Use
  Company Number: US-JNJFOC-20131202787

PATIENT
  Sex: Male
  Weight: 98.43 kg

DRUGS (2)
  1. DURAGESIC [Suspect]
     Active Substance: FENTANYL
     Indication: PAIN
     Route: 062
  2. DURAGESIC [Suspect]
     Active Substance: FENTANYL
     Indication: PAIN
     Route: 062

REACTIONS (5)
  - Product adhesion issue [Unknown]
  - Drug dose omission [Unknown]
  - Application site erythema [Not Recovered/Not Resolved]
  - Product packaging issue [Unknown]
  - Application site irritation [Not Recovered/Not Resolved]
